FAERS Safety Report 9562060 (Version 3)
Quarter: 2013Q4

REPORT INFORMATION
  Report Type: Spontaneous
  Country: RO (occurrence: RO)
  Receive Date: 20130927
  Receipt Date: 20131010
  Transmission Date: 20140711
  Serious: Yes (Hospitalization, Other)
  Sender: FDA-Public Use
  Company Number: RO-SANOFI-AVENTIS-2013SA094920

PATIENT
  Age: 81 Year
  Sex: Female

DRUGS (12)
  1. INDAPAMIDE [Suspect]
     Indication: SUICIDE ATTEMPT
     Route: 048
  2. INDAPAMIDE [Suspect]
     Indication: HYPERTENSION
     Route: 048
  3. INDAPAMIDE [Suspect]
     Indication: MYOCARDIAL ISCHAEMIA
     Route: 048
  4. INDAPAMIDE [Suspect]
     Indication: SUICIDE ATTEMPT
     Dosage: 16 TABLETS OF 1.5 MG= 24 MG
     Route: 048
  5. INDAPAMIDE [Suspect]
     Indication: HYPERTENSION
     Dosage: 16 TABLETS OF 1.5 MG= 24 MG
     Route: 048
  6. INDAPAMIDE [Suspect]
     Indication: MYOCARDIAL ISCHAEMIA
     Dosage: 16 TABLETS OF 1.5 MG= 24 MG
     Route: 048
  7. DILTIAZEM HYDROCHLORIDE [Suspect]
     Indication: SUICIDE ATTEMPT
     Route: 048
  8. DILTIAZEM HYDROCHLORIDE [Suspect]
     Indication: HYPERTENSION
     Route: 048
  9. DILTIAZEM HYDROCHLORIDE [Suspect]
     Indication: MYOCARDIAL ISCHAEMIA
     Route: 048
  10. DILTIAZEM HYDROCHLORIDE [Suspect]
     Indication: SUICIDE ATTEMPT
     Dosage: 5.76 G (90 TABLETS OF 60 MG DILTIAZEM)
     Route: 048
  11. DILTIAZEM HYDROCHLORIDE [Suspect]
     Indication: HYPERTENSION
     Dosage: 5.76 G (90 TABLETS OF 60 MG DILTIAZEM)
     Route: 048
  12. DILTIAZEM HYDROCHLORIDE [Suspect]
     Indication: MYOCARDIAL ISCHAEMIA
     Dosage: 5.76 G (90 TABLETS OF 60 MG DILTIAZEM)
     Route: 048

REACTIONS (6)
  - Cardiovascular insufficiency [Recovering/Resolving]
  - Intentional overdose [Unknown]
  - Suicide attempt [Unknown]
  - Metabolic acidosis [Recovering/Resolving]
  - Hyperglycaemia [Recovering/Resolving]
  - Atrioventricular block second degree [Recovering/Resolving]
